FAERS Safety Report 10013988 (Version 1)
Quarter: 2014Q1

REPORT INFORMATION
  Report Type: Spontaneous
  Country: DE (occurrence: DE)
  Receive Date: 20140317
  Receipt Date: 20140317
  Transmission Date: 20141002
  Serious: Yes (Other)
  Sender: FDA-Public Use
  Company Number: DE-JNJFOC-20140308213

PATIENT
  Sex: Female

DRUGS (2)
  1. PALEXIA RETARD [Suspect]
     Indication: PAIN
     Route: 048
  2. NORSPAN [Concomitant]
     Indication: PRODUCT USED FOR UNKNOWN INDICATION
     Route: 062

REACTIONS (1)
  - Epidermolysis [Recovering/Resolving]
